FAERS Safety Report 20043905 (Version 1)
Quarter: 2021Q4

REPORT INFORMATION
  Report Type: Spontaneous
  Country: US (occurrence: US)
  Receive Date: 20211108
  Receipt Date: 20211108
  Transmission Date: 20220303
  Serious: No
  Sender: FDA-Public Use
  Company Number: US-CIPLA LTD.-2021US06212

PATIENT

DRUGS (6)
  1. GABAPENTIN [Suspect]
     Active Substance: GABAPENTIN
     Indication: Sciatica
     Dosage: 100 MG
     Route: 065
     Dates: start: 202108
  2. GABAPENTIN [Suspect]
     Active Substance: GABAPENTIN
     Indication: Neuralgia
     Dosage: 200 MG
     Route: 065
     Dates: start: 202108
  3. GABAPENTIN [Suspect]
     Active Substance: GABAPENTIN
     Dosage: 300 MILLIGRAM (200 MG + 100 MG CAPSULES), TID
     Route: 065
     Dates: start: 2021
  4. GABAPENTIN [Suspect]
     Active Substance: GABAPENTIN
     Dosage: 1500 MG (5 CAPSULES OF 300 MG, 1 IN MORNING, 1 AT NOON, + 3 AT NIGHT), TID
     Route: 065
     Dates: start: 20210905
  5. ELIQUIS [Concomitant]
     Active Substance: APIXABAN
     Indication: Anticoagulant therapy
     Dosage: 5 MILLIGRAM, BID
     Route: 065
  6. LOSARTAN [Concomitant]
     Active Substance: LOSARTAN
     Indication: Hypertension
     Dosage: 100 MILLIGRAM, QD, AT BED TIME
     Route: 065

REACTIONS (5)
  - Drug ineffective [Unknown]
  - Off label use [Unknown]
  - Product use in unapproved indication [Unknown]
  - Accidental exposure to product [Unknown]
  - Extra dose administered [Unknown]

NARRATIVE: CASE EVENT DATE: 20210801
